FAERS Safety Report 7767194-1 (Version None)
Quarter: 2011Q3

REPORT INFORMATION
  Report Type: 
  Country: None (occurrence: None)
  Receive Date: 20110922
  Receipt Date: 20110602
  Transmission Date: 20111222
  Serious: No
  Sender: FDA-Public Use
  Company Number: US-ASTRAZENECA-2011SE34282

PATIENT
  Age: 45 Year
  Sex: Female
  Weight: 117.9 kg

DRUGS (6)
  1. SEROQUEL [Suspect]
     Indication: BIPOLAR DISORDER
     Route: 048
     Dates: start: 20070101
  2. CELEBREX [Concomitant]
  3. CYMBALTA [Concomitant]
  4. SEROQUEL [Suspect]
     Indication: SLEEP DISORDER
     Route: 048
     Dates: start: 20070101
  5. CLONAZEPAM [Concomitant]
  6. OMEPRAZOLE [Concomitant]

REACTIONS (7)
  - PANIC ATTACK [None]
  - INSOMNIA [None]
  - CRYING [None]
  - OFF LABEL USE [None]
  - DRUG DOSE OMISSION [None]
  - HUNGER [None]
  - WEIGHT INCREASED [None]
